FAERS Safety Report 25967916 (Version 1)
Quarter: 2025Q4

REPORT INFORMATION
  Report Type: Spontaneous
  Country: US (occurrence: US)
  Receive Date: 20251028
  Receipt Date: 20251028
  Transmission Date: 20260118
  Serious: Yes (Hospitalization, Disabling)
  Sender: Medicap Laboratories
  Company Number: US-Medicap-000094

PATIENT
  Age: 80 Year
  Sex: Male

DRUGS (7)
  1. PRAZOSIN [Concomitant]
     Active Substance: PRAZOSIN
     Indication: Nightmare
     Dosage: PRAZOSIN AT BEDTIME FOR PTSD-RELATED NIGHTMARES
     Route: 065
  2. RISPERIDONE [Concomitant]
     Active Substance: RISPERIDONE
     Indication: Nightmare
     Dosage: RISPERIDONE AT BEDTIME FOR PTSD-RELATED NIGHTMARES
     Route: 065
  3. TEMAZEPAM [Concomitant]
     Active Substance: TEMAZEPAM
     Indication: Nightmare
     Dosage: TEMAZEPAM AT BEDTIME FOR PTSD-RELATED NIGHTMARES
     Route: 065
  4. SERTRALINE [Concomitant]
     Active Substance: SERTRALINE HYDROCHLORIDE
     Indication: Depression
     Dosage: SERTRALINE IN THE MORNING FOR DEPRESSIVE SYMPTOMS, NIGHT SWEATS AND NIGHTMARES, DOSE 25 MG TO INCRE
     Route: 065
  5. CLONAZEPAM [Concomitant]
     Active Substance: CLONAZEPAM
     Indication: Rapid eye movement sleep behaviour disorder
     Dosage: CLONAZEPAM TO TARGET RBD
     Route: 065
  6. MELATONIN [Concomitant]
     Active Substance: MELATONIN
     Indication: Nightmare
     Dosage: MELATONIN WITH SERTRALINE
     Route: 065
  7. QUETIAPINE [Suspect]
     Active Substance: QUETIAPINE
     Indication: Rapid eye movement sleep behaviour disorder
     Dosage: 12.5 MG AT BEDTIME
     Route: 065

REACTIONS (6)
  - Paradoxical drug reaction [Recovered/Resolved]
  - Drug ineffective [Unknown]
  - Sleep terror [Recovered/Resolved]
  - Incoherent [Recovered/Resolved]
  - Loss of personal independence in daily activities [Recovered/Resolved]
  - Sedation [Recovered/Resolved]
